FAERS Safety Report 10156526 (Version 1)
Quarter: 2014Q2

REPORT INFORMATION
  Report Type: Spontaneous
  Country: US (occurrence: None)
  Receive Date: 20140505
  Receipt Date: 20140505
  Transmission Date: 20141212
  Serious: Yes (Life-Threatening, Hospitalization)
  Sender: FDA-Public Use
  Company Number: 2014P1003606

PATIENT
  Age: 53 Year
  Sex: Male

DRUGS (1)
  1. CITALOPRAM [Suspect]
     Dosage: 2400MG X1, PO
     Route: 048

REACTIONS (10)
  - Serotonin syndrome [None]
  - Blood pressure decreased [None]
  - Hypoxia [None]
  - Acute respiratory distress syndrome [None]
  - Metabolic acidosis [None]
  - Respiratory acidosis [None]
  - Overdose [None]
  - Neurotoxicity [None]
  - Electrocardiogram QT prolonged [None]
  - No therapeutic response [None]
